FAERS Safety Report 7509375-8 (Version None)
Quarter: 2011Q2

REPORT INFORMATION
  Report Type: 
  Country: None (occurrence: None)
  Receive Date: 20110527
  Receipt Date: 20110428
  Transmission Date: 20111010
  Serious: No
  Sender: FDA-Public Use
  Company Number: US-BAYER-2011-038018

PATIENT
  Age: 13 Year
  Sex: Male

DRUGS (1)
  1. ALEVE (CAPLET) [Suspect]
     Indication: HEADACHE
     Dosage: 3 DF, ONCE, UNKNOWN BOTTLE COUNT
     Route: 048
     Dates: start: 20110428, end: 20110428

REACTIONS (1)
  - NO ADVERSE EVENT [None]
